FAERS Safety Report 9729729 (Version 1)
Quarter: 2013Q4

REPORT INFORMATION
  Report Type: Spontaneous
  Country: US (occurrence: US)
  Receive Date: 20131204
  Receipt Date: 20131204
  Transmission Date: 20140711
  Serious: No
  Sender: FDA-Public Use
  Company Number: US-GILEAD-2009-0021879

PATIENT
  Sex: Female
  Weight: 74.84 kg

DRUGS (13)
  1. LETAIRIS [Suspect]
     Indication: PULMONARY ARTERIAL HYPERTENSION
     Route: 048
     Dates: start: 20090501
  2. OXYGEN [Concomitant]
  3. ASPIRIN [Concomitant]
  4. PLAVIX [Concomitant]
  5. FUROSEMIDE [Concomitant]
  6. IPRATROPIUM BROMIDE [Concomitant]
  7. ALBUTEROL SOLN [Concomitant]
  8. PERFOROMIST [Concomitant]
  9. MEGESTROL [Concomitant]
  10. OMEPRAZOLE [Concomitant]
  11. KLOR-CON [Concomitant]
  12. MULTIVITAMIN [Concomitant]
  13. IRON [Concomitant]

REACTIONS (2)
  - Local swelling [Not Recovered/Not Resolved]
  - Dyspnoea [Not Recovered/Not Resolved]
